FAERS Safety Report 5171400-X (Version None)
Quarter: 2006Q4

REPORT INFORMATION
  Report Type: 
  Country: None (occurrence: None)
  Receive Date: 20061213
  Receipt Date: 20060329
  Transmission Date: 20070319
  Serious: Yes (Other)
  Sender: FDA-Public Use
  Company Number: US-AMGEN-STX174294

PATIENT
  Age: 61 Year
  Sex: Female

DRUGS (5)
  1. ENBREL [Suspect]
     Indication: RHEUMATOID ARTHRITIS
     Route: 058
     Dates: start: 20030601
  2. PLAQUENIL [Concomitant]
  3. PREDNISONE TAB [Concomitant]
  4. FORTEO [Concomitant]
     Route: 058
  5. ESTRACE [Concomitant]

REACTIONS (1)
  - BREAST CANCER [None]
